FAERS Safety Report 23706843 (Version 1)
Quarter: 2024Q2

REPORT INFORMATION
  Report Type: Spontaneous
  Country: US (occurrence: None)
  Receive Date: 20240403
  Receipt Date: 20240403
  Transmission Date: 20240716
  Serious: No
  Sender: FDA-Public Use
  Company Number: None

PATIENT
  Sex: Male

DRUGS (8)
  1. TACROLIMUS [Suspect]
     Active Substance: TACROLIMUS
     Indication: Heart transplant
     Dosage: OTHER QUANTITY : TADE 2 CAPSULES;?FREQUENCY : DAILY;?
     Route: 048
     Dates: start: 20151027
  2. ACYCLOVIR [Concomitant]
     Active Substance: ACYCLOVIR
  3. LIDO/PRILOCN CRE [Concomitant]
  4. MAG OXIDE [Concomitant]
  5. METHADONE [Concomitant]
  6. OXYCODONE [Concomitant]
     Active Substance: OXYCODONE\OXYCODONE HYDROCHLORIDE
  7. PROGRAF [Concomitant]
     Active Substance: TACROLIMUS
  8. VITAMIN C [Concomitant]

REACTIONS (1)
  - Hospitalisation [None]
